FAERS Safety Report 4819579-0 (Version None)
Quarter: 2005Q4

REPORT INFORMATION
  Report Type: 
  Country: None (occurrence: None)
  Receive Date: 20051102
  Receipt Date: 20051102
  Transmission Date: 20060501
  Serious: Yes (Life-Threatening)
  Sender: FDA-Public Use
  Company Number: None

PATIENT
  Age: 58 Year
  Sex: Male
  Weight: 72 kg

DRUGS (5)
  1. CLOPIDOGREL 75 MG QD [Suspect]
     Indication: ACUTE MYOCARDIAL INFARCTION
     Dosage: 75 MG QD PO
     Route: 048
     Dates: start: 20050415
  2. CLOPIDOGREL 75 MG QD [Suspect]
     Indication: STENT PLACEMENT
     Dosage: 75 MG QD PO
     Route: 048
     Dates: start: 20050415
  3. WARFARIN SODIUM [Suspect]
     Indication: PULMONARY EMBOLISM
     Dosage: 5 MG PO QD
     Route: 048
     Dates: start: 20050506
  4. ASPIRIN [Suspect]
     Indication: CORONARY ARTERY DISEASE
     Dosage: 81 MG QD
     Dates: start: 20050415
  5. OMEPRAZOLE [Concomitant]

REACTIONS (4)
  - ASTHENIA [None]
  - GASTROINTESTINAL HAEMORRHAGE [None]
  - HAEMATOCRIT DECREASED [None]
  - PULMONARY EMBOLISM [None]
